FAERS Safety Report 9551339 (Version 1)
Quarter: 2013Q3

REPORT INFORMATION
  Report Type: Spontaneous
  Country: US (occurrence: None)
  Receive Date: 20130923
  Receipt Date: 20130923
  Transmission Date: 20140515
  Serious: Yes (Life-Threatening)
  Sender: FDA-Public Use
  Company Number: None

PATIENT
  Age: 12 Year
  Sex: Male

DRUGS (4)
  1. XYZAL [Suspect]
     Indication: MULTIPLE ALLERGIES
     Route: 048
  2. ALBUTEROL [Concomitant]
  3. NASONEX [Concomitant]
  4. CHILDRENS CENTRUM [Concomitant]

REACTIONS (3)
  - Fatigue [None]
  - Depression [None]
  - Suicidal ideation [None]
